FAERS Safety Report 6445391-5 (Version None)
Quarter: 2009Q4

REPORT INFORMATION
  Report Type: 
  Country: None (occurrence: None)
  Receive Date: 20091118
  Receipt Date: 20091105
  Transmission Date: 20100525
  Serious: Yes (Other)
  Sender: FDA-Public Use
  Company Number: PHHY2009CA46145

PATIENT
  Sex: Female

DRUGS (11)
  1. ACLASTA [Suspect]
     Indication: OSTEOPOROSIS
     Dosage: UNK
     Route: 042
     Dates: start: 20091002
  2. ORENCIA [Concomitant]
     Dosage: 500 MG, Q MONTHLY
     Route: 042
  3. HYDROXYCHLOROQUINE SULFATE [Concomitant]
     Dosage: 200 MG, BID
  4. PREDNISONE [Concomitant]
     Dosage: 2 MG, DAILY
  5. TRAMADOL HCL [Concomitant]
     Dosage: UNK
  6. CLONAZEPAM [Concomitant]
     Dosage: UNK
  7. REMERON [Concomitant]
     Dosage: UNK
  8. PROGESTERONE [Concomitant]
     Dosage: UNK
  9. LEVOTHYROXINE SODIUM [Concomitant]
     Dosage: UNK
  10. ZOPICLONE [Concomitant]
     Dosage: UNK
  11. ESTRADIOL [Concomitant]
     Dosage: UNK

REACTIONS (2)
  - JOINT ARTHROPLASTY [None]
  - TENDON DISORDER [None]
